FAERS Safety Report 4387609-9 (Version None)
Quarter: 2004Q2

REPORT INFORMATION
  Report Type: 
  Country: None (occurrence: None)
  Receive Date: 20040630
  Receipt Date: 20040519
  Transmission Date: 20050107
  Serious: No
  Sender: FDA-Public Use
  Company Number: US-GLAXOSMITHKLINE-A0511452A

PATIENT
  Age: 66 Year
  Sex: Female

DRUGS (8)
  1. ADVAIR HFA [Suspect]
     Indication: ASTHMA
     Dosage: 1PUFF TWICE PER DAY
     Route: 055
  2. PRILOSEC [Concomitant]
  3. VIOXX [Concomitant]
  4. NEFAZODONE HCL [Concomitant]
  5. SOMA [Concomitant]
  6. HUMIBID LA [Concomitant]
  7. LEXAPRO [Concomitant]
  8. VERAPAMIL [Concomitant]

REACTIONS (2)
  - PHARMACEUTICAL PRODUCT COMPLAINT [None]
  - WHEEZING [None]
